FAERS Safety Report 17796242 (Version 1)
Quarter: 2020Q2

REPORT INFORMATION
  Report Type: Spontaneous
  Country: DE (occurrence: DE)
  Receive Date: 20200517
  Receipt Date: 20200517
  Transmission Date: 20200714
  Serious: Yes (Hospitalization, Other)
  Sender: FDA-Public Use
  Company Number: NVSC2020DE133319

PATIENT
  Sex: Female

DRUGS (22)
  1. METHOTREXATE. [Suspect]
     Active Substance: METHOTREXATE
     Indication: RHEUMATOID ARTHRITIS
     Dosage: 10 MG, UNKNOWN
     Route: 065
  2. METHOTREXATE. [Suspect]
     Active Substance: METHOTREXATE
     Dosage: 10 MG, UNKNOWN
     Route: 065
  3. ROACTEMRA [Suspect]
     Active Substance: TOCILIZUMAB
     Dosage: 680 MG
     Route: 042
     Dates: start: 20140502
  4. ROACTEMRA [Suspect]
     Active Substance: TOCILIZUMAB
     Dosage: 680 MG, UNKNOWN
     Route: 042
     Dates: start: 20160530
  5. ROACTEMRA [Suspect]
     Active Substance: TOCILIZUMAB
     Dosage: 600 MG, Q4W
     Route: 042
     Dates: start: 20181019, end: 20190508
  6. ROACTEMRA [Suspect]
     Active Substance: TOCILIZUMAB
     Dosage: 680 MG
     Route: 042
     Dates: start: 20110428
  7. ROACTEMRA [Suspect]
     Active Substance: TOCILIZUMAB
     Dosage: 680 MG, UNKNOWN
     Route: 042
     Dates: start: 20171026
  8. METHOTREXATE. [Suspect]
     Active Substance: METHOTREXATE
     Dosage: 15 MG, UNKNOWN
     Route: 065
     Dates: start: 200911
  9. ROACTEMRA [Suspect]
     Active Substance: TOCILIZUMAB
     Dosage: 680 MG, UNKNOWN
     Route: 042
     Dates: start: 20151130
  10. ROACTEMRA [Suspect]
     Active Substance: TOCILIZUMAB
     Indication: RHEUMATOID ARTHRITIS
     Dosage: 680 MG
     Route: 042
     Dates: start: 20091111
  11. ROACTEMRA [Suspect]
     Active Substance: TOCILIZUMAB
     Dosage: 680 MG, UNKNOWN
     Route: 042
     Dates: start: 20131105
  12. ROACTEMRA [Suspect]
     Active Substance: TOCILIZUMAB
     Dosage: 162 MG, UNKNOWN
     Route: 042
     Dates: start: 20150323
  13. ROACTEMRA [Suspect]
     Active Substance: TOCILIZUMAB
     Dosage: 680 MG
     Route: 042
     Dates: start: 20100525
  14. ROACTEMRA [Suspect]
     Active Substance: TOCILIZUMAB
     Dosage: 680 MG, UNKNOWN
     Route: 042
     Dates: start: 20180503
  15. ROACTEMRA [Suspect]
     Active Substance: TOCILIZUMAB
     Dosage: UNK UNK, UNKNOWN
     Route: 042
     Dates: start: 20120504
  16. ROACTEMRA [Suspect]
     Active Substance: TOCILIZUMAB
     Dosage: 680 MG
     Route: 042
     Dates: start: 20170511
  17. ROACTEMRA [Suspect]
     Active Substance: TOCILIZUMAB
     Dosage: 680 MG
     Route: 042
     Dates: start: 20161018
  18. ROACTEMRA [Suspect]
     Active Substance: TOCILIZUMAB
     Dosage: 680 MG
     Route: 042
     Dates: start: 20130430
  19. XELJANZ [Concomitant]
     Active Substance: TOFACITINIB CITRATE
     Indication: RHEUMATOID ARTHRITIS
     Route: 065
     Dates: end: 20181001
  20. ROACTEMRA [Suspect]
     Active Substance: TOCILIZUMAB
     Dosage: 680 MG, UNKNOWN
     Route: 042
     Dates: start: 20101104
  21. ROACTEMRA [Suspect]
     Active Substance: TOCILIZUMAB
     Dosage: 680 MG, UNKNOWN
     Route: 042
     Dates: start: 20121112
  22. ROACTEMRA [Suspect]
     Active Substance: TOCILIZUMAB
     Dosage: 680 MG
     Route: 042
     Dates: start: 20111118

REACTIONS (2)
  - Non-Hodgkin^s lymphoma [Not Recovered/Not Resolved]
  - Peritonsillar abscess [Recovered/Resolved]

NARRATIVE: CASE EVENT DATE: 20180508
